FAERS Safety Report 15743525 (Version 1)
Quarter: 2018Q4

REPORT INFORMATION
  Report Type: Spontaneous
  Country: FR (occurrence: FR)
  Receive Date: 20181220
  Receipt Date: 20181220
  Transmission Date: 20190205
  Serious: Yes (Other)
  Sender: FDA-Public Use
  Company Number: FR-ZYDUS-031754

PATIENT
  Age: 6 Decade
  Sex: Female

DRUGS (4)
  1. PHENOXYMETHYLPENICILLIN [Concomitant]
     Active Substance: PENICILLIN V
     Indication: HAIRY CELL LEUKAEMIA
     Route: 065
  2. SULFAMETHOXAZOLE/TRIMETHOPRIM [Concomitant]
     Indication: HAIRY CELL LEUKAEMIA
     Route: 065
  3. VALACICLOVIR [Suspect]
     Active Substance: VALACYCLOVIR HYDROCHLORIDE
     Indication: HAIRY CELL LEUKAEMIA
     Dosage: ()
     Route: 065
  4. CLADRIBINE. [Concomitant]
     Active Substance: CLADRIBINE
     Indication: HAIRY CELL LEUKAEMIA
     Route: 065

REACTIONS (1)
  - Drug reaction with eosinophilia and systemic symptoms [Recovering/Resolving]
